FAERS Safety Report 21640512 (Version 1)
Quarter: 2022Q4

REPORT INFORMATION
  Report Type: Report from Study
  Country: PR (occurrence: PR)
  Receive Date: 20221124
  Receipt Date: 20221124
  Transmission Date: 20230113
  Serious: No
  Sender: FDA-Public Use
  Company Number: PR-ABBVIE-4179702

PATIENT
  Sex: Female

DRUGS (10)
  1. HUMIRA [Suspect]
     Active Substance: ADALIMUMAB
     Indication: Crohn^s disease
     Dosage: CITRATE FREE
     Route: 058
     Dates: start: 20220418
  2. PREDNISONE [Concomitant]
     Active Substance: PREDNISONE
     Indication: Diabetes mellitus
     Route: 048
  3. ELIQUIS [Concomitant]
     Active Substance: APIXABAN
     Indication: Thrombosis
     Route: 048
  4. ATENOLOL [Concomitant]
     Active Substance: ATENOLOL
     Indication: Tachycardia
     Route: 048
  5. Covid 19 vaccine [Concomitant]
     Indication: COVID-19
     Dosage: 4TH DOSE, ONE IN ONCE
     Route: 030
     Dates: start: 20220403, end: 20220403
  6. Covid 19 vaccine [Concomitant]
     Indication: COVID-19
     Dosage: 2ND DOSE, ONE IN ONCE
     Route: 030
     Dates: start: 20210304, end: 20210304
  7. Covid 19 vaccine [Concomitant]
     Indication: COVID-19
     Dosage: 1ST DOSE, ONE IN ONCE
     Route: 030
     Dates: start: 20210204, end: 20210204
  8. Covid 19 vaccine [Concomitant]
     Indication: COVID-19
     Dosage: 3RD DOSE, ONE IN ONCE
     Route: 030
     Dates: start: 20211114, end: 20211114
  9. SYNTHROID [Concomitant]
     Active Substance: LEVOTHYROXINE SODIUM
     Indication: Hypothyroidism
     Route: 048
  10. SIMVASTATIN [Concomitant]
     Active Substance: SIMVASTATIN
     Indication: Hypercholesterolaemia
     Route: 048

REACTIONS (1)
  - Weight decreased [Unknown]
